FAERS Safety Report 17458396 (Version 2)
Quarter: 2020Q2

REPORT INFORMATION
  Report Type: Spontaneous
  Country: ES (occurrence: ES)
  Receive Date: 20200225
  Receipt Date: 20200528
  Transmission Date: 20200713
  Serious: Yes (Hospitalization)
  Sender: FDA-Public Use
  Company Number: ES-CANTON LABORATORIES, LLC-2080897

PATIENT
  Age: 40 Year
  Sex: Male

DRUGS (4)
  1. METAMIZOLE [Concomitant]
     Active Substance: METAMIZOLE
     Route: 048
  2. DESVENLAFAXINE. [Suspect]
     Active Substance: DESVENLAFAXINE
     Route: 065
  3. DULOXETINE. [Suspect]
     Active Substance: DULOXETINE
     Route: 048
  4. NAPROSYN [Suspect]
     Active Substance: NAPROXEN
     Indication: ABDOMINAL PAIN
     Route: 048

REACTIONS (7)
  - Gastrointestinal haemorrhage [Recovering/Resolving]
  - Duodenal ulcer [Unknown]
  - Constipation [Recovering/Resolving]
  - Drug interaction [Unknown]
  - Overdose [Unknown]
  - Abdominal pain [Recovering/Resolving]
  - Melaena [Recovering/Resolving]
